FAERS Safety Report 4804797-8 (Version None)
Quarter: 2005Q4

REPORT INFORMATION
  Report Type: 
  Country: None (occurrence: None)
  Receive Date: 20051017
  Receipt Date: 20051004
  Transmission Date: 20060501
  Serious: Yes (Other)
  Sender: FDA-Public Use
  Company Number: 2005137778

PATIENT
  Age: 60 Year
  Sex: Male
  Weight: 113.3993 kg

DRUGS (4)
  1. VIAGRA [Suspect]
     Indication: SEXUAL DYSFUNCTION
     Dosage: ORAL
     Route: 048
     Dates: end: 20030101
  2. ANTIHYPERTENSIVES (ANTIHYPERTENSIVES) [Suspect]
     Indication: PROPHYLAXIS
  3. CHOLESTEROL- AND TRIGLYCERIDE REDUCERS (CHOLESTEROL- AND TRIGLYCERIDE [Suspect]
     Indication: PROPHYLAXIS
  4. MULTIVITAMIN [Concomitant]

REACTIONS (9)
  - BLINDNESS UNILATERAL [None]
  - COUGH [None]
  - EYE DISORDER [None]
  - EYE HAEMORRHAGE [None]
  - FLUSHING [None]
  - OCULAR HYPERAEMIA [None]
  - OCULAR VASCULAR DISORDER [None]
  - STRESS [None]
  - VISUAL FIELD DEFECT [None]
